FAERS Safety Report 8176252-1 (Version None)
Quarter: 2012Q1

REPORT INFORMATION
  Report Type: 
  Country: None (occurrence: None)
  Receive Date: 20120301
  Receipt Date: 20120224
  Transmission Date: 20120608
  Serious: Yes (Hospitalization, Disabling)
  Sender: FDA-Public Use
  Company Number: US-B.I. PHARMACEUTICALS,INC./RIDGEFIELD-2012-EU-01152GD

PATIENT
  Age: 72 Year
  Sex: Male

DRUGS (1)
  1. DABIGATRAN ETEXILATE [Suspect]
     Indication: ATRIAL FIBRILLATION
     Dosage: 300 MG
     Route: 048

REACTIONS (9)
  - MUSCULAR WEAKNESS [None]
  - PARESIS ANAL SPHINCTER [None]
  - PROCEDURAL HAEMORRHAGE [None]
  - SPINAL CORD COMPRESSION [None]
  - MONOPLEGIA [None]
  - COAGULOPATHY [None]
  - BLADDER DYSFUNCTION [None]
  - EXTRADURAL HAEMATOMA [None]
  - HYPOAESTHESIA [None]
